FAERS Safety Report 6042076-4 (Version None)
Quarter: 2009Q1

REPORT INFORMATION
  Report Type: 
  Country: None (occurrence: None)
  Receive Date: 20090116
  Receipt Date: 20080516
  Transmission Date: 20090719
  Serious: No
  Sender: FDA-Public Use
  Company Number: US-BAYER-200812261BCC

PATIENT
  Age: 66 Year
  Sex: Female
  Weight: 86 kg

DRUGS (4)
  1. ALEVE (CAPLET) [Suspect]
     Indication: ANALGESIA
     Dosage: TOTAL DAILY DOSE: 220 MG  UNIT DOSE: 220 MG
     Route: 048
     Dates: start: 20080516
  2. HEART MEDICATION [Concomitant]
     Route: 065
  3. SYNTHROID [Concomitant]
     Route: 065
  4. FEMHRT [Concomitant]
     Route: 065

REACTIONS (1)
  - HEADACHE [None]
